FAERS Safety Report 12710664 (Version 1)
Quarter: 2016Q3

REPORT INFORMATION
  Report Type: Spontaneous
  Country: BR (occurrence: BR)
  Receive Date: 20160902
  Receipt Date: 20160902
  Transmission Date: 20161109
  Serious: Yes (Other)
  Sender: FDA-Public Use
  Company Number: BR-PFIZER INC-2016399951

PATIENT
  Age: 66 Year
  Sex: Male
  Weight: 83 kg

DRUGS (3)
  1. AZORGA [Concomitant]
     Active Substance: BRINZOLAMIDE\TIMOLOL MALEATE
     Dosage: UNK
  2. GINKO BILOBA [Concomitant]
     Active Substance: GINKGO
     Dosage: UNK
     Route: 048
  3. XALATAN [Suspect]
     Active Substance: LATANOPROST
     Indication: GLAUCOMA
     Dosage: UNK
     Route: 047

REACTIONS (2)
  - Visual acuity reduced [Unknown]
  - Drug ineffective [Unknown]
